FAERS Safety Report 18671601 (Version 1)
Quarter: 2020Q4

REPORT INFORMATION
  Report Type: Report from Study
  Country: FR (occurrence: FR)
  Receive Date: 20201228
  Receipt Date: 20201228
  Transmission Date: 20210114
  Serious: Yes (Other)
  Sender: FDA-Public Use
  Company Number: FR-ASTRAZENECA-2020SF72792

PATIENT
  Sex: Female

DRUGS (3)
  1. OSIMERTINIB. [Suspect]
     Active Substance: OSIMERTINIB
     Indication: LUNG ADENOCARCINOMA STAGE IV
     Dosage: 80.0MG UNKNOWN
     Route: 048
  2. CRIZOTINIB [Suspect]
     Active Substance: CRIZOTINIB
     Indication: LUNG ADENOCARCINOMA STAGE IV
     Route: 065
  3. ERLOTINIB [Suspect]
     Active Substance: ERLOTINIB
     Indication: LUNG ADENOCARCINOMA STAGE IV
     Route: 065

REACTIONS (7)
  - Visual impairment [Unknown]
  - Oedema [Unknown]
  - Paronychia [Unknown]
  - Diarrhoea [Unknown]
  - Rash [Unknown]
  - Drug resistance [Unknown]
  - Pancytopenia [Unknown]
